FAERS Safety Report 10550042 (Version 4)
Quarter: 2015Q1

REPORT INFORMATION
  Report Type: Report from Study
  Country: JP (occurrence: JP)
  Receive Date: 20141028
  Receipt Date: 20150129
  Transmission Date: 20150720
  Serious: Yes (Hospitalization)
  Sender: FDA-Public Use
  Company Number: JP-EISAI MEDICAL RESEARCH-EC-2014-001109

PATIENT
  Age: 80 Year
  Sex: Female
  Weight: 49 kg

DRUGS (9)
  1. ALFACALCIDOL [Concomitant]
     Active Substance: ALFACALCIDOL
  2. RABEPRAZOLE [Suspect]
     Active Substance: RABEPRAZOLE
     Route: 048
     Dates: start: 20131025, end: 20131219
  3. IFENPRODIL TARTRATE [Concomitant]
     Active Substance: IFENPRODIL TARTRATE
  4. AN EXTRACT OBTAINED FROM INFLAMMATORY RABBIT SKIN INOCULA [Concomitant]
  5. RABEPRAZOLE [Suspect]
     Active Substance: RABEPRAZOLE
     Indication: GASTROOESOPHAGEAL REFLUX DISEASE
     Route: 048
     Dates: start: 20100325, end: 20131024
  6. AMEZINIUM METILSULFATE [Concomitant]
     Active Substance: AMEZINIUM METILSULFATE
  7. KETOPROFEN. [Concomitant]
     Active Substance: KETOPROFEN
  8. RABEPRAZOLE [Suspect]
     Active Substance: RABEPRAZOLE
     Dosage: MAINTAINANCE PHASE-DOUBLE BLIND
     Route: 048
     Dates: start: 20131220, end: 20141029
  9. LIMAPROST ALFADEX [Concomitant]
     Active Substance: LIMAPROST

REACTIONS (1)
  - Papillary thyroid cancer [Recovered/Resolved]

NARRATIVE: CASE EVENT DATE: 20140926
